FAERS Safety Report 16226665 (Version 1)
Quarter: 2019Q2

REPORT INFORMATION
  Report Type: Spontaneous
  Country: CA (occurrence: CA)
  Receive Date: 20190423
  Receipt Date: 20190423
  Transmission Date: 20190711
  Serious: Yes (Disabling, Other)
  Sender: FDA-Public Use
  Company Number: CA-TEVA-2019-CA-1039474

PATIENT
  Age: 63 Year
  Sex: Female
  Weight: 56.75 kg

DRUGS (1)
  1. CIPROFLOXACIN. [Suspect]
     Active Substance: CIPROFLOXACIN
     Indication: URINARY TRACT INFECTION
     Route: 048

REACTIONS (4)
  - Groin pain [Recovering/Resolving]
  - Tendon disorder [Recovering/Resolving]
  - Back pain [Recovering/Resolving]
  - Impaired work ability [Recovering/Resolving]
